FAERS Safety Report 6813624-9 (Version None)
Quarter: 2010Q3

REPORT INFORMATION
  Report Type: 
  Country: None (occurrence: None)
  Receive Date: 20100701
  Receipt Date: 20100628
  Transmission Date: 20110219
  Serious: Yes (Other)
  Sender: FDA-Public Use
  Company Number: DE-B.I. PHARMACEUTICALS,INC./RIDGEFIELD-2010-DE-03477DE

PATIENT

DRUGS (5)
  1. SIFROL [Suspect]
     Dosage: 30 ANZ
     Route: 048
  2. ZYPREXA [Suspect]
     Dosage: 21 ANZ
     Route: 048
  3. HYPNOREX [Suspect]
     Dosage: 30 ANZ
     Route: 048
  4. LORAZEPAM [Suspect]
     Dosage: 20 ANZ
     Route: 048
  5. ELONTRIL [Suspect]
     Dosage: 10 ANZ
     Route: 048

REACTIONS (2)
  - SOPOR [None]
  - SUICIDE ATTEMPT [None]
